FAERS Safety Report 13892065 (Version 1)
Quarter: 2017Q3

REPORT INFORMATION
  Report Type: Spontaneous
  Country: US (occurrence: US)
  Receive Date: 20170822
  Receipt Date: 20170822
  Transmission Date: 20171127
  Serious: No
  Sender: FDA-Public Use
  Company Number: US-ENDO PHARMACEUTICALS INC-2016-004653

PATIENT
  Age: 79 Year
  Sex: Male
  Weight: 133.48 kg

DRUGS (3)
  1. TESTOPEL [Suspect]
     Active Substance: TESTOSTERONE
     Dosage: 10 PELLETS
     Route: 058
     Dates: start: 2013
  2. TESTOPEL [Suspect]
     Active Substance: TESTOSTERONE
     Indication: HYPOGONADISM
  3. TESTOPEL [Suspect]
     Active Substance: TESTOSTERONE
     Dosage: 10 PELLETS
     Route: 058
     Dates: start: 20160701

REACTIONS (3)
  - Haemorrhage [Unknown]
  - Prescribed overdose [Unknown]
  - Expulsion of medication [Not Recovered/Not Resolved]

NARRATIVE: CASE EVENT DATE: 201605
